FAERS Safety Report 7200248-7 (Version None)
Quarter: 2010Q4

REPORT INFORMATION
  Report Type: 
  Country: None (occurrence: None)
  Receive Date: 20101228
  Receipt Date: 20101223
  Transmission Date: 20110411
  Serious: Yes (Other)
  Sender: FDA-Public Use
  Company Number: A0901426A

PATIENT
  Age: 19 Year
  Sex: Female

DRUGS (3)
  1. LAMICTAL XR [Suspect]
     Route: 048
     Dates: start: 20101205
  2. VIMPAT [Suspect]
     Dosage: 100MG TWICE PER DAY
     Route: 048
     Dates: start: 20101101
  3. NO CONCURRENT MEDICATION [Concomitant]

REACTIONS (6)
  - CONVULSION [None]
  - FALL [None]
  - HEADACHE [None]
  - MIGRAINE [None]
  - TREMOR [None]
  - VOMITING [None]
